FAERS Safety Report 6028166-0 (Version None)
Quarter: 2008Q4

REPORT INFORMATION
  Report Type: 
  Country: None (occurrence: None)
  Receive Date: 20081231
  Receipt Date: 20081231
  Transmission Date: 20090506
  Serious: Yes (Hospitalization)
  Sender: FDA-Public Use
  Company Number: None

PATIENT
  Sex: Female
  Weight: 63.5 kg

DRUGS (2)
  1. BEVACIZUMAB / GENETECH [Suspect]
     Indication: BREAST CANCER METASTATIC
     Dosage: 15 MG/KG EVERY 21 DAYS IV /041
     Route: 042
     Dates: start: 20080215, end: 20081211
  2. TRASTUZUMAB [Concomitant]

REACTIONS (1)
  - PULMONARY EMBOLISM [None]
